FAERS Safety Report 5090206-3 (Version None)
Quarter: 2006Q3

REPORT INFORMATION
  Report Type: 
  Country: None (occurrence: None)
  Receive Date: 20060828
  Receipt Date: 20060821
  Transmission Date: 20061208
  Serious: Yes (Hospitalization)
  Sender: FDA-Public Use
  Company Number: FR-GLAXOSMITHKLINE-B0435497A

PATIENT
  Age: 63 Year
  Sex: Male

DRUGS (2)
  1. AUGMENTIN [Suspect]
     Dosage: 3G PER DAY
     Route: 048
     Dates: start: 20060715, end: 20060726
  2. OFLOCET [Suspect]
     Dosage: 400MG PER DAY
     Route: 048
     Dates: start: 20060715, end: 20060725

REACTIONS (3)
  - HYPERTHERMIA [None]
  - PHOTOSENSITIVITY REACTION [None]
  - RASH MACULO-PAPULAR [None]
